FAERS Safety Report 4708138-6 (Version None)
Quarter: 2005Q3

REPORT INFORMATION
  Report Type: 
  Country: None (occurrence: None)
  Receive Date: 20050707
  Receipt Date: 20050622
  Transmission Date: 20060218
  Serious: Yes (Hospitalization)
  Sender: FDA-Public Use
  Company Number: GBWYE766922JUN05

PATIENT
  Age: 64 Year
  Sex: Male
  Weight: 83 kg

DRUGS (7)
  1. ENBREL [Suspect]
     Indication: PSORIATIC ARTHROPATHY
     Route: 058
     Dates: start: 20040601, end: 20050331
  2. METHOTREXATE [Concomitant]
     Route: 048
     Dates: start: 20030812, end: 20050601
  3. SULFASALAZINE [Concomitant]
     Route: 048
     Dates: start: 20031003, end: 20050601
  4. ETORICOXIB [Concomitant]
     Route: 048
     Dates: start: 20031121, end: 20050601
  5. FOLIC ACID [Concomitant]
     Route: 048
     Dates: start: 20030812, end: 20050601
  6. ALENDRONATE SODIUM [Concomitant]
     Dosage: UNKNOWN
     Route: 065
     Dates: start: 20030501
  7. CALCIUM PHOSPHATE/CALCIUM SODIUM LACTATE/ERGOCALCIFEROL [Concomitant]
     Dosage: UNKNOWN
     Route: 065
     Dates: start: 20030501

REACTIONS (3)
  - ERYTHEMA MULTIFORME [None]
  - GASTROINTESTINAL HAEMORRHAGE [None]
  - STOMATITIS [None]
